FAERS Safety Report 6570830-9 (Version None)
Quarter: 2010Q1

REPORT INFORMATION
  Report Type: 
  Country: None (occurrence: None)
  Receive Date: 20100202
  Receipt Date: 20100202
  Transmission Date: 20100710
  Serious: Yes (Other)
  Sender: FDA-Public Use
  Company Number: None

PATIENT
  Age: 54 Year
  Sex: Female
  Weight: 68.0396 kg

DRUGS (1)
  1. FAMVIR [Suspect]
     Indication: HERPES ZOSTER
     Dosage: 500MG FIVE X DAY PO
     Route: 048
     Dates: start: 20100122, end: 20100127

REACTIONS (2)
  - HYPOAESTHESIA [None]
  - ORAL DISORDER [None]
